FAERS Safety Report 15768376 (Version 2)
Quarter: 2019Q1

REPORT INFORMATION
  Report Type: Spontaneous
  Country: US (occurrence: US)
  Receive Date: 20181227
  Receipt Date: 20190325
  Transmission Date: 20190417
  Serious: Yes (Death, Other)
  Sender: FDA-Public Use
  Company Number: US-BRISTOL-MYERS SQUIBB COMPANY-BMS-2018-120016

PATIENT
  Age: 52 Year
  Sex: Male

DRUGS (2)
  1. YERVOY [Suspect]
     Active Substance: IPILIMUMAB
     Indication: GASTROINTESTINAL STROMAL TUMOUR
     Dosage: 74 MG, Q3WK
     Route: 065
  2. OPDIVO [Suspect]
     Active Substance: NIVOLUMAB
     Indication: GASTROINTESTINAL STROMAL TUMOUR
     Dosage: 222 MG, Q3WK
     Route: 065

REACTIONS (2)
  - Death [Fatal]
  - Product use in unapproved indication [Unknown]

NARRATIVE: CASE EVENT DATE: 20181115
